FAERS Safety Report 10344651 (Version 1)
Quarter: 2014Q3

REPORT INFORMATION
  Report Type: Spontaneous
  Country: US (occurrence: US)
  Receive Date: 20140728
  Receipt Date: 20140728
  Transmission Date: 20150326
  Serious: Yes (Other)
  Sender: FDA-Public Use
  Company Number: US-JNJCP-30000230997

PATIENT
  Sex: Male
  Weight: 84 kg

DRUGS (2)
  1. NEUTROGENA HEALTHY SKIN FACE SUNSCREEN SPF 15 [Suspect]
     Active Substance: OCTINOXATE\OXYBENZONE
     Indication: DRY SKIN PROPHYLAXIS
     Dosage: TWO PUMPS TWICE A DAY
     Route: 061
  2. MENOCYCLINE [Concomitant]
     Indication: ACNE
     Dosage: 100MG SINCE TWELVE YEARS

REACTIONS (2)
  - Cyst [Not Recovered/Not Resolved]
  - Application site scar [Not Recovered/Not Resolved]
